FAERS Safety Report 9061768 (Version 2)
Quarter: 2013Q1

REPORT INFORMATION
  Report Type: Report from Study
  Country: NZ (occurrence: NZ)
  Receive Date: 20130204
  Receipt Date: 20130320
  Transmission Date: 20140127
  Serious: Yes (Hospitalization, Other)
  Sender: FDA-Public Use
  Company Number: PHHY2013NZ009111

PATIENT
  Age: 42 None
  Sex: Male
  Weight: 117 kg

DRUGS (25)
  1. CLOZARIL [Suspect]
     Indication: SCHIZOPHRENIA
     Dosage: 300 MG
     Dates: start: 20121204, end: 20121224
  2. CLOMIPRAMINE [Concomitant]
     Indication: OBSESSIVE-COMPULSIVE DISORDER
     Dosage: 75 MG QD
     Route: 048
     Dates: start: 20060828, end: 20120824
  3. AMITRIPTYLLIN [Concomitant]
     Indication: SALIVARY HYPERSECRETION
     Dosage: 25 MG NOCTE
     Route: 048
     Dates: start: 20121217, end: 20121224
  4. CALCIUM CARBONATE [Concomitant]
     Dosage: 500 MG, BID
  5. ANTIDEPRESSANTS [Concomitant]
     Dosage: UNK
  6. ANTIPSYCHOTICS [Concomitant]
     Dosage: UNK
  7. AMIODARONE [Concomitant]
     Dosage: 300 MG
     Route: 042
  8. AMIODARONE [Concomitant]
     Dosage: 900 MG
     Route: 042
  9. CEFTRIAXONE [Concomitant]
     Dosage: 2 G
     Route: 042
     Dates: end: 20121225
  10. ENOXAPARIN [Concomitant]
     Dosage: 20 MG
  11. CHOLECALCIFEROL [Concomitant]
     Dosage: 1.25 MG, MONTHLY
     Route: 048
  12. METOPROLOL [Concomitant]
     Dosage: 25 MG, BID
     Route: 048
  13. AMISULPRIDE [Concomitant]
     Dosage: 200 MG, BID
     Route: 048
  14. LAXSOL [Concomitant]
     Dosage: 2 DF, PRN
     Route: 048
  15. LACTULOSE [Concomitant]
     Dosage: 20 ML, BID
     Route: 048
  16. PARACETAMOL [Concomitant]
     Dosage: 1 G, BID
     Route: 048
  17. PROZIN//PROMETHAZINE [Concomitant]
     Dosage: 25 MG, NOCTE
  18. RISPERIDONE [Concomitant]
     Dosage: 6 MG
  19. RISPERIDONE [Concomitant]
     Dosage: 4 MG
  20. OLANZAPINE [Concomitant]
     Dosage: 50 MG, BID
  21. OLANZAPINE [Concomitant]
     Dosage: 95 MG, NOCTE
  22. BUSPIRONE [Concomitant]
     Dosage: 5 MG, TID
  23. BUSPIRONE [Concomitant]
     Dosage: 5 MG, BID
  24. QUETIAPINE [Concomitant]
     Dosage: UNK
  25. CLOZAPINE [Concomitant]
     Dosage: UNK

REACTIONS (23)
  - Hypocalcaemia [Recovered/Resolved]
  - Grand mal convulsion [Unknown]
  - Tremor [Unknown]
  - Loss of consciousness [Unknown]
  - Dyskinesia [Unknown]
  - Muscle twitching [Unknown]
  - Abnormal behaviour [Unknown]
  - Tongue biting [Unknown]
  - Urinary incontinence [Unknown]
  - Metabolic acidosis [Unknown]
  - Obstructive airways disorder [Unknown]
  - Asphyxia [Unknown]
  - Cyanosis [Unknown]
  - Arrhythmia [Unknown]
  - Palpitations [Unknown]
  - Supraventricular tachycardia [Unknown]
  - Heart rate increased [Unknown]
  - Electrocardiogram QT prolonged [Unknown]
  - Musculoskeletal chest pain [Unknown]
  - Blood glucose abnormal [Unknown]
  - Petechiae [Unknown]
  - Anxiety [Unknown]
  - Gamma-glutamyltransferase increased [Unknown]
